FAERS Safety Report 25367724 (Version 1)
Quarter: 2025Q2

REPORT INFORMATION
  Report Type: Spontaneous
  Country: ES (occurrence: ES)
  Receive Date: 20250528
  Receipt Date: 20250528
  Transmission Date: 20250717
  Serious: Yes (Other)
  Sender: VIIV
  Company Number: ES-VIIV HEALTHCARE-ES2025EME064214

PATIENT

DRUGS (1)
  1. DOVATO [Suspect]
     Active Substance: DOLUTEGRAVIR SODIUM\LAMIVUDINE
     Indication: HIV infection
     Dates: start: 2014

REACTIONS (13)
  - Nasal operation [Recovered/Resolved]
  - Facial wasting [Unknown]
  - Aphonia [Unknown]
  - Stress [Unknown]
  - Muscle atrophy [Unknown]
  - Anxiety [Unknown]
  - Hyperhidrosis [Unknown]
  - Fear [Unknown]
  - Negative thoughts [Unknown]
  - Rash [Not Recovered/Not Resolved]
  - Weight increased [Unknown]
  - Tinnitus [Unknown]
  - Depressed mood [Unknown]
